FAERS Safety Report 4786655-0 (Version None)
Quarter: 2005Q4

REPORT INFORMATION
  Report Type: 
  Country: None (occurrence: None)
  Receive Date: 20051003
  Receipt Date: 20051003
  Transmission Date: 20060501
  Serious: Yes (Other)
  Sender: FDA-Public Use
  Company Number: None

PATIENT
  Sex: Female

DRUGS (1)
  1. RISPERDAL [Suspect]
     Indication: SCHIZOPHRENIA
     Dosage: 2  TABLETS ONCE DAILY
     Dates: start: 19970101

REACTIONS (4)
  - DIZZINESS [None]
  - MENSTRUATION IRREGULAR [None]
  - POOR QUALITY DRUG ADMINISTERED [None]
  - VISION BLURRED [None]
